FAERS Safety Report 4369592-5 (Version None)
Quarter: 2004Q2

REPORT INFORMATION
  Report Type: 
  Country: None (occurrence: None)
  Receive Date: 20040526
  Receipt Date: 20040420
  Transmission Date: 20050107
  Serious: Yes (Life-Threatening, Hospitalization)
  Sender: FDA-Public Use
  Company Number: USA040259939

PATIENT
  Age: 75 Year
  Sex: Female
  Weight: 90 kg

DRUGS (12)
  1. ZYPREXA [Suspect]
     Indication: BIPOLAR DISORDER
     Dosage: 5 MG/DAY
  2. ZYPREXA [Suspect]
     Indication: DEPRESSION
     Dosage: 5 MG/DAY
  3. PREMARIN [Concomitant]
  4. LASIX [Concomitant]
  5. K-DUR 10 [Concomitant]
  6. SYNTHROID [Concomitant]
  7. VIOXX [Concomitant]
  8. COUMADIN [Concomitant]
  9. ZAROXOLYN [Concomitant]
  10. MORPHINE [Concomitant]
  11. VITAMIN B-12 [Concomitant]
  12. HYZAAR [Concomitant]

REACTIONS (2)
  - COMA [None]
  - INTENTIONAL OVERDOSE [None]
